FAERS Safety Report 5332217-6 (Version None)
Quarter: 2007Q2

REPORT INFORMATION
  Report Type: 
  Country: None (occurrence: None)
  Receive Date: 20070306
  Receipt Date: 20060502
  Transmission Date: 20071010
  Serious: Yes (Other)
  Sender: FDA-Public Use
  Company Number: A03200602798

PATIENT
  Age: 35 Year
  Sex: Female
  Weight: 48.9885 kg

DRUGS (4)
  1. PLAVIX [Suspect]
     Indication: MYOCARDIAL INFARCTION
     Dosage: 75 MG QD - ORAL
     Route: 048
  2. COREG [Suspect]
     Dosage: 45 MG BID - ORAL
     Route: 048
  3. ASPIRIN [Suspect]
     Dosage: 81 MG QD - ORAL
     Route: 048
  4. K-DUR 10 [Suspect]
     Dosage: 10 MEQ QD - ORAL
     Route: 048

REACTIONS (2)
  - DRUG EXPOSURE DURING PREGNANCY [None]
  - MYOCARDIAL INFARCTION [None]
